FAERS Safety Report 8977950 (Version 1)
Quarter: 2012Q4

REPORT INFORMATION
  Report Type: 
  Country: US (occurrence: US)
  Receive Date: 20121220
  Receipt Date: 20121220
  Transmission Date: 20130627
  Serious: Yes (Other)
  Sender: FDA-Public Use
  Company Number: US-AMGEN-USASP2012080078

PATIENT
  Sex: Male
  Weight: 92.97 kg

DRUGS (9)
  1. ENBREL [Suspect]
     Indication: PSORIATIC ARTHROPATHY
     Dosage: 25 mg, 3 times/wk
     Route: 058
     Dates: end: 20121208
  2. CELEBREX [Concomitant]
     Dosage: 100 mg, UNK
  3. METHOTREXATE [Concomitant]
     Dosage: 2.5 mg, UNK
  4. ALLEGRA [Concomitant]
     Dosage: 30 mg, UNK
  5. OMEPRAZOLE [Concomitant]
     Dosage: 10 mg, UNK
  6. GABAPENTIN [Concomitant]
     Dosage: 100 mg, UNK
  7. PLAVIX [Concomitant]
     Dosage: 75 mg, UNK
  8. LASIX                              /00032601/ [Concomitant]
     Dosage: 20 mg, UNK
  9. MULTIVITAMINS, PLAIN [Concomitant]
     Dosage: UNK

REACTIONS (3)
  - Carotid artery occlusion [Unknown]
  - Intracranial aneurysm [Unknown]
  - Uveitis [Unknown]
